FAERS Safety Report 5521139-3 (Version None)
Quarter: 2007Q4

REPORT INFORMATION
  Report Type: 
  Country: None (occurrence: None)
  Receive Date: 20071119
  Receipt Date: 20071107
  Transmission Date: 20080405
  Serious: Yes (Hospitalization)
  Sender: FDA-Public Use
  Company Number: FR-ASTRAZENECA-2007CG01574

PATIENT
  Sex: Male

DRUGS (1)
  1. TENORMIN [Suspect]
     Indication: ESSENTIAL HYPERTENSION
     Route: 064
     Dates: start: 20070101, end: 20071013

REACTIONS (1)
  - HYPOGLYCAEMIA NEONATAL [None]
